FAERS Safety Report 21763260 (Version 1)
Quarter: 2022Q4

REPORT INFORMATION
  Report Type: Spontaneous
  Country: IL (occurrence: IL)
  Receive Date: 20221221
  Receipt Date: 20221221
  Transmission Date: 20230112
  Serious: No
  Sender: FDA-Public Use
  Company Number: IL-009507513-2212ISR004310

PATIENT
  Sex: Male

DRUGS (2)
  1. MOLNUPIRAVIR [Suspect]
     Active Substance: MOLNUPIRAVIR
     Dosage: 1 PILL NIGHT AND 1 PILL AT THE NEXT MORNING
     Route: 048
     Dates: start: 20221205
  2. MOLNUPIRAVIR [Suspect]
     Active Substance: MOLNUPIRAVIR
     Dosage: 4 PILLS TOGETHER
     Route: 048
     Dates: start: 20221206

REACTIONS (3)
  - Diarrhoea [Not Recovered/Not Resolved]
  - Product dose confusion [Unknown]
  - Incorrect dose administered [Unknown]

NARRATIVE: CASE EVENT DATE: 20221205
